FAERS Safety Report 21084087 (Version 1)
Quarter: 2022Q3

REPORT INFORMATION
  Report Type: Spontaneous
  Country: IT (occurrence: IT)
  Receive Date: 20220714
  Receipt Date: 20220714
  Transmission Date: 20221026
  Serious: No
  Sender: FDA-Public Use
  Company Number: IT-JAZZ-2022-IT-020699

PATIENT
  Age: 9 Year
  Sex: Female

DRUGS (2)
  1. EPIDIOLEX [Suspect]
     Active Substance: CANNABIDIOL
     Indication: CDKL5 deficiency disorder
     Dosage: 20 MG/KG/DAY
  2. BEDROLITE [Concomitant]
     Dosage: UNK

REACTIONS (1)
  - Off label use [Unknown]
